FAERS Safety Report 7220983-4 (Version None)
Quarter: 2011Q1

REPORT INFORMATION
  Report Type: 
  Country: None (occurrence: None)
  Receive Date: 20110112
  Receipt Date: 20110107
  Transmission Date: 20110831
  Serious: Yes (Life-Threatening)
  Sender: FDA-Public Use
  Company Number: PHHY2011US01712

PATIENT
  Sex: Female

DRUGS (1)
  1. DIOVAN HCT [Suspect]
     Dosage: 320 MG OF VALS AND 25 MG OF HYDRO

REACTIONS (2)
  - BRAIN NEOPLASM [None]
  - FEELING ABNORMAL [None]
